FAERS Safety Report 7367273-7 (Version None)
Quarter: 2011Q1

REPORT INFORMATION
  Report Type: 
  Country: None (occurrence: None)
  Receive Date: 20110311
  Receipt Date: 20110304
  Transmission Date: 20110831
  Serious: Yes (Other)
  Sender: FDA-Public Use
  Company Number: TAJPN-10-0584

PATIENT
  Age: 43 Year
  Sex: Female
  Weight: 46 kg

DRUGS (5)
  1. ZOMETA [Concomitant]
  2. PROTECADIN (LAFUTIDINE) [Concomitant]
  3. ABRAXANE [Suspect]
     Indication: BREAST CANCER METASTATIC
     Dosage: (361.4 MG)
     Dates: start: 20100928
  4. HERCEPTIN [Concomitant]
  5. GABAPENTIN [Concomitant]

REACTIONS (4)
  - VISUAL ACUITY REDUCED [None]
  - OPTIC NERVE DISORDER [None]
  - DRY EYE [None]
  - VISION BLURRED [None]
